FAERS Safety Report 24117315 (Version 1)
Quarter: 2024Q3

REPORT INFORMATION
  Report Type: Spontaneous
  Country: US (occurrence: US)
  Receive Date: 20240722
  Receipt Date: 20240722
  Transmission Date: 20241017
  Serious: No
  Sender: DR REDDYS
  Company Number: US-DRL-USA-LIT/USA/24/0010375

PATIENT
  Age: 38 Year
  Sex: Female

DRUGS (4)
  1. PREGABALIN [Suspect]
     Active Substance: PREGABALIN
     Indication: Glossopharyngeal neuralgia
  2. BOTOX [Concomitant]
     Active Substance: ONABOTULINUMTOXINA
     Indication: Glossopharyngeal neuralgia
     Dosage: EVERY 12 WEEKS
  3. PREDNISONE [Concomitant]
     Active Substance: PREDNISONE
     Indication: Glossopharyngeal neuralgia
  4. BACLOFEN [Concomitant]
     Active Substance: BACLOFEN
     Indication: Glossopharyngeal neuralgia

REACTIONS (1)
  - Drug ineffective for unapproved indication [Unknown]
